FAERS Safety Report 8418127-6 (Version None)
Quarter: 2012Q2

REPORT INFORMATION
  Report Type: 
  Country: None (occurrence: None)
  Receive Date: 20120531
  Receipt Date: 20120517
  Transmission Date: 20120825
  Serious: Yes (Other)
  Sender: FDA-Public Use
  Company Number: 2011MA002972

PATIENT
  Sex: Female

DRUGS (17)
  1. PROPOXYPHENE HCL AND ACETAMINOPHEN [Concomitant]
  2. AMOXICILLIN [Concomitant]
  3. IBUPROFEN [Concomitant]
  4. LOREAZEPAM [Concomitant]
  5. AGGRENOX [Concomitant]
  6. ZOLOFT [Concomitant]
  7. METOCLOPRAMIDE [Suspect]
     Dosage: 10 MG;TID PRN;PO
     Route: 048
     Dates: start: 20040915, end: 20080601
  8. ALPRAZOLAM [Concomitant]
  9. TEMAZEPAM [Concomitant]
  10. DIPHENHYDRAMINE/MAALOX [Concomitant]
  11. ACETAMIONPHEN W/CODEINE [Concomitant]
  12. AMITRIPTYLINE HCL [Concomitant]
  13. CYMBALTA [Concomitant]
  14. HYDROCODONE [Concomitant]
  15. CEPHALEXIN [Concomitant]
  16. MEDROXYPROGESTERONE [Concomitant]
  17. BACTRIM [Concomitant]

REACTIONS (10)
  - RESTLESS LEGS SYNDROME [None]
  - DYSKINESIA [None]
  - TARDIVE DYSKINESIA [None]
  - AKATHISIA [None]
  - EXTRAPYRAMIDAL DISORDER [None]
  - TREMOR [None]
  - DYSTONIA [None]
  - ECONOMIC PROBLEM [None]
  - EMOTIONAL DISORDER [None]
  - FAMILY STRESS [None]
